FAERS Safety Report 18095413 (Version 8)
Quarter: 2020Q4

REPORT INFORMATION
  Report Type: Report from Study
  Country: US (occurrence: US)
  Receive Date: 20200731
  Receipt Date: 20201231
  Transmission Date: 20210113
  Serious: Yes (Hospitalization)
  Sender: FDA-Public Use
  Company Number: US-WORLDWIDE CLINICAL TRIALS-2020-US-000300

PATIENT
  Age: 66 Year
  Sex: Male
  Weight: 73.5 kg

DRUGS (45)
  1. PREDNISOLONE ACETATE. [Concomitant]
     Active Substance: PREDNISOLONE ACETATE
     Indication: KERATITIS
  2. ALPRAZOLAM. [Concomitant]
     Active Substance: ALPRAZOLAM
     Indication: ANXIETY
     Dosage: 0.25 MILLIGRAM
     Route: 048
     Dates: start: 20200722
  3. PANTOPRAZOLE [Concomitant]
     Active Substance: PANTOPRAZOLE
     Indication: GASTROOESOPHAGEAL REFLUX DISEASE
     Dosage: 40 MILLIGRAM
     Route: 042
     Dates: start: 20200629, end: 20200701
  4. MORPHINE SULFATE. [Concomitant]
     Active Substance: MORPHINE SULFATE
     Indication: COLITIS
     Dosage: 4 MILLIGRAM
     Route: 042
     Dates: start: 20200627, end: 20200628
  5. OLANZAPINE. [Concomitant]
     Active Substance: OLANZAPINE
     Indication: PSYCHOTIC DISORDER
  6. CYCLOSPORINE. [Concomitant]
     Active Substance: CYCLOSPORINE
     Indication: UVEITIS
  7. ENOXAPARIN [Concomitant]
     Active Substance: ENOXAPARIN
     Indication: THROMBOSIS PROPHYLAXIS
     Dosage: 40 MILLIGRAM
     Route: 058
     Dates: start: 20200627, end: 20200628
  8. DCC-2618 [Suspect]
     Active Substance: RIPRETINIB
     Dosage: 150 MILLIGRAM, QD
     Route: 048
     Dates: start: 20200219, end: 20200627
  9. DCC-2618 [Suspect]
     Active Substance: RIPRETINIB
     Dosage: 150 MILLIGRAM, QD
     Route: 048
     Dates: start: 20200718, end: 20200720
  10. ALBUTEROL SULFATE. [Concomitant]
     Active Substance: ALBUTEROL SULFATE
     Indication: DYSPNOEA
     Dosage: 90 MICROGRAM
     Route: 055
     Dates: start: 2019
  11. PREDNISOLONE. [Concomitant]
     Active Substance: PREDNISOLONE
     Indication: DRY EYE
     Dosage: 1 DROP
     Route: 047
     Dates: start: 20200628, end: 20200701
  12. PANTOPRAZOLE [Concomitant]
     Active Substance: PANTOPRAZOLE
     Indication: PROPHYLAXIS
     Dosage: 40 MILLIGRAM
     Route: 048
     Dates: start: 20200701, end: 20200706
  13. CARBOXYMETHYLCELLULOSE [Concomitant]
     Active Substance: CARBOXYMETHYLCELLULOSE
     Indication: UVEITIS
     Dosage: 1 DROP (GTT)
     Route: 047
     Dates: start: 20200628, end: 20200701
  14. HYDROXYPROPYL METHYLCELLULOSE [Concomitant]
     Active Substance: HYPROMELLOSES
     Indication: KERATITIS
  15. METHYLPREDNISOLONE. [Concomitant]
     Active Substance: METHYLPREDNISOLONE
     Indication: COLITIS
     Dosage: 60 MILLIGRAM
     Route: 042
     Dates: start: 20200627, end: 20200628
  16. ACETAMINOPHEN. [Concomitant]
     Active Substance: ACETAMINOPHEN
     Indication: COLITIS
     Dosage: 650 MILLIGRAM
     Route: 048
     Dates: start: 20200627, end: 20200627
  17. PREDNISOLONE ACETATE. [Concomitant]
     Active Substance: PREDNISOLONE ACETATE
     Indication: UVEITIS
     Dosage: 1%, 1 DROP (GTT)
     Route: 047
     Dates: start: 201808
  18. OLANZAPINE. [Concomitant]
     Active Substance: OLANZAPINE
     Indication: DECREASED APPETITE
     Dosage: 5 MILLIGRAM
     Route: 048
     Dates: start: 20200627, end: 20200630
  19. ALKA-SELTZER [Concomitant]
     Active Substance: ANHYDROUS CITRIC ACID\ASPIRIN\SODIUM BICARBONATE
     Indication: GASTROOESOPHAGEAL REFLUX DISEASE
     Dosage: 325 MILLIGRAM
     Route: 048
     Dates: start: 2019, end: 20200701
  20. PREDNISOLONE. [Concomitant]
     Active Substance: PREDNISOLONE
     Indication: KERATITIS
     Dosage: 1 DROP (GTT)
     Route: 047
     Dates: start: 20200622
  21. TRIMETHOPRIM SULFAMETHOXAZOLE [Concomitant]
     Active Substance: SULFAMETHOXAZOLE\TRIMETHOPRIM
     Indication: INFECTION PROPHYLAXIS
     Dosage: 800 MILLIGRAM
     Route: 048
     Dates: start: 20200629, end: 20200701
  22. ONDANSETRON [Concomitant]
     Active Substance: ONDANSETRON
     Indication: NAUSEA
     Dosage: 8 MILLIGRAM
     Route: 048
     Dates: start: 20200701, end: 20200715
  23. POTASSIUM CHLORIDE. [Concomitant]
     Active Substance: POTASSIUM CHLORIDE
     Indication: PROPHYLAXIS
     Dosage: 20 MILLIEQUIVALENT
     Route: 042
     Dates: start: 20200629, end: 20200630
  24. OLANZAPINE. [Concomitant]
     Active Substance: OLANZAPINE
     Indication: DECREASED APPETITE
     Dosage: 5 MILLIGRAM
     Route: 048
     Dates: start: 2019
  25. REFRESH CLASSIC LUBRICANT EYE DROPS [Concomitant]
     Indication: KERATITIS
  26. LANSOPRAZOLE. [Concomitant]
     Active Substance: LANSOPRAZOLE
     Indication: GASTROOESOPHAGEAL REFLUX DISEASE
     Dosage: 30 MILLIGRAM
     Route: 048
     Dates: start: 20200706, end: 20200810
  27. BISACODYL. [Concomitant]
     Active Substance: BISACODYL
     Indication: CONSTIPATION PROPHYLAXIS
     Dosage: 20 MILLIGRAM
     Route: 048
     Dates: start: 20200629, end: 20200629
  28. POTASSIUM PHOSPHATE MONOBASIC;SODIUM PHOSPHATE;SODIUM PHOSPHATE MONOBA [Concomitant]
     Indication: PROPHYLAXIS
     Dosage: 500 MILLIGRAM
     Route: 048
     Dates: start: 20200701, end: 20200701
  29. REFRESH LIQUIGEL [Concomitant]
     Active Substance: CARBOXYMETHYLCELLULOSE SODIUM
     Indication: KERATITIS
  30. RESTASIS [Concomitant]
     Active Substance: CYCLOSPORINE
     Indication: KERATITIS
     Dosage: 0.05%, 1 DROP (GTT)
     Route: 047
     Dates: start: 20200211
  31. PIPERACILLIN/TAZOBACTAM [Concomitant]
     Active Substance: PIPERACILLIN SODIUM\TAZOBACTAM SODIUM
     Indication: INFECTION PROPHYLAXIS
     Dosage: 4.5 GRAM
     Route: 042
     Dates: start: 20200627, end: 20200701
  32. POLYETHYLENE GLYCOL ELECTROLYTES POWDER (2) [Concomitant]
     Active Substance: POLYETHYLENE GLYCOL 4000\POTASSIUM CHLORIDE\SODIUM BICARBONATE\SODIUM CHLORIDE\SODIUM SULFATE
     Indication: CONSTIPATION PROPHYLAXIS
     Dosage: 2000 MILLILITER
     Route: 048
     Dates: start: 20200630, end: 20200630
  33. REFRESH LIQUIGEL [Concomitant]
     Active Substance: CARBOXYMETHYLCELLULOSE SODIUM
     Indication: DRY EYE
     Dosage: 1 DROP (GTT)
     Route: 047
     Dates: start: 20200404, end: 20200701
  34. DCC-2618 [Suspect]
     Active Substance: RIPRETINIB
     Indication: MALIGNANT MELANOMA
     Dosage: 150 MILLIGRAM, QD
     Route: 048
     Dates: start: 20200113, end: 20200211
  35. SERTRALINE [Concomitant]
     Active Substance: SERTRALINE HYDROCHLORIDE
     Indication: ANXIETY
     Dosage: 100 MILLIGRAM
     Route: 048
     Dates: start: 2019
  36. SERTRALINE [Concomitant]
     Active Substance: SERTRALINE HYDROCHLORIDE
     Indication: DEPRESSION
  37. MARIJUANA [Concomitant]
     Active Substance: CANNABIS SATIVA SUBSP. INDICA TOP
     Indication: PROPHYLAXIS
     Dosage: UNK, UNK
     Route: 065
     Dates: start: 2019, end: 20200701
  38. REFRESH CLASSIC LUBRICANT EYE DROPS [Concomitant]
     Indication: DRY EYE
     Dosage: 1 DROP (GTT)
     Route: 047
     Dates: start: 20200404, end: 20200701
  39. PREDNISONE. [Concomitant]
     Active Substance: PREDNISONE
     Indication: UVEITIS
     Dosage: 10 MILLIGRAM
     Route: 048
     Dates: start: 20200626, end: 20200719
  40. PREDNISONE. [Concomitant]
     Active Substance: PREDNISONE
     Indication: COLITIS
     Dosage: 40 MILLIGRAM
     Route: 048
     Dates: start: 20200701, end: 20200701
  41. ONDANSETRON [Concomitant]
     Active Substance: ONDANSETRON
     Indication: PROPHYLAXIS OF NAUSEA AND VOMITING
  42. CARBOXYMETHYLCELLULOSE [Concomitant]
     Active Substance: CARBOXYMETHYLCELLULOSE
     Indication: KERATITIS
  43. CYCLOSPORINE. [Concomitant]
     Active Substance: CYCLOSPORINE
     Indication: KERATITIS
     Dosage: 1 DROP (GTT)
     Route: 047
     Dates: start: 20200627, end: 20200701
  44. HYDROXYPROPYL METHYLCELLULOSE [Concomitant]
     Active Substance: HYPROMELLOSES
     Indication: UVEITIS
     Dosage: 1 DROP (GTT)
     Route: 047
     Dates: start: 20200628, end: 20200629
  45. METHYLPREDNISOLONE. [Concomitant]
     Active Substance: METHYLPREDNISOLONE
     Dosage: 35 MILLIGRAM
     Route: 042
     Dates: start: 20200629, end: 20200701

REACTIONS (6)
  - Blood bilirubin increased [Recovered/Resolved]
  - Duodenal perforation [Recovered/Resolved]
  - Abdominal pain [Recovered/Resolved]
  - Blood alkaline phosphatase increased [Recovered/Resolved]
  - Colitis [Recovered/Resolved]
  - Pyrexia [Recovered/Resolved]

NARRATIVE: CASE EVENT DATE: 20200715
